FAERS Safety Report 9757939 (Version 1)
Quarter: 2013Q4

REPORT INFORMATION
  Report Type: Report from Study
  Country: US (occurrence: US)
  Receive Date: 20131216
  Receipt Date: 20131216
  Transmission Date: 20140711
  Serious: Yes (Death)
  Sender: FDA-Public Use
  Company Number: US-ROCHE-1318718

PATIENT
  Age: 64 Year
  Sex: Male

DRUGS (11)
  1. RITUXAN [Suspect]
     Indication: CHRONIC LYMPHOCYTIC LEUKAEMIA
     Dosage: MOST RECENT DOSE, 24/JUL/2013
     Route: 042
  2. ACETAMINOPHEN [Concomitant]
     Route: 065
  3. ALLOPURINOL [Concomitant]
     Route: 065
  4. CARVEDILOL [Concomitant]
     Route: 065
  5. FUROSEMIDE [Concomitant]
     Route: 065
  6. MUCINEX [Concomitant]
     Route: 065
  7. MAGNESIUM HYDROXIDE [Concomitant]
     Route: 065
  8. ZAROXOLYN [Concomitant]
     Route: 065
  9. DEXAMETHASONE [Concomitant]
     Route: 065
  10. OMEPRAZOLE [Concomitant]
     Route: 065
  11. NITROGLYCERINE [Concomitant]
     Route: 065

REACTIONS (2)
  - Death [Fatal]
  - Infusion related reaction [Unknown]
